FAERS Safety Report 9341014 (Version 3)
Quarter: 2013Q4

REPORT INFORMATION
  Report Type: Spontaneous
  Country: GB (occurrence: None)
  Receive Date: 20130530
  Receipt Date: 20131029
  Transmission Date: 20140711
  Serious: Yes (Other)
  Sender: FDA-Public Use
  Company Number: 2013036200

PATIENT
  Age: 65 Year
  Sex: Male

DRUGS (1)
  1. PRIVIGEN [Suspect]
     Indication: CHRONIC INFLAMMATORY DEMYELINATING POLYRADICULONEUROPATHY
     Dosage: 180 G 1X/6 WEEKS, 180G OVER TWO DAYS (11 AND 12-MAR2013, BATCH ADMINISTERED 8 TIMES, BATCH ADMINISTERED 2 TIMES, INTRAVENOUS (NOT OTHERWISE SPECIFIED)
     Route: 042
     Dates: start: 20121217

REACTIONS (9)
  - Back pain [None]
  - Myalgia [None]
  - Bone pain [None]
  - Pain in extremity [None]
  - Muscular weakness [None]
  - Bedridden [None]
  - Gait disturbance [None]
  - Feeling abnormal [None]
  - Headache [None]
